FAERS Safety Report 10733764 (Version 6)
Quarter: 2015Q3

REPORT INFORMATION
  Report Type: Report from Study
  Country: BE (occurrence: BE)
  Receive Date: 20150123
  Receipt Date: 20150807
  Transmission Date: 20151125
  Serious: Yes (Hospitalization)
  Sender: FDA-Public Use
  Company Number: BE-ABBVIE-14P-013-1298691-00

PATIENT
  Sex: Male

DRUGS (9)
  1. DUODOPA [Suspect]
     Active Substance: CARBIDOPA\LEVODOPA
     Dosage: CONTINUOUSLY MONITORED AND ADAPTED
     Route: 050
     Dates: start: 20130607, end: 20140510
  2. ACETYLSALICYLIC ACID [Concomitant]
     Active Substance: ASPIRIN
     Indication: PRODUCT USED FOR UNKNOWN INDICATION
  3. DUODOPA [Suspect]
     Active Substance: CARBIDOPA\LEVODOPA
     Dosage: AM = 2 ML, CD = 1.9 ML/H DURING 16H, ED = 1 ML
     Route: 050
     Dates: start: 20141123, end: 20141210
  4. STALEVO [Concomitant]
     Active Substance: CARBIDOPA\ENTACAPONE\LEVODOPA
     Indication: PARKINSON^S DISEASE
     Dosage: 50/12.5/200 MG, EMERGENCY MEDICATION: 3 IN 1 DAY
  5. DUODOPA [Suspect]
     Active Substance: CARBIDOPA\LEVODOPA
     Dosage: AM = 2 ML, CD = 2.2 ML/H DURING 16H, ED = 1 ML
     Route: 050
     Dates: start: 20140510, end: 20141024
  6. DUODOPA [Suspect]
     Active Substance: CARBIDOPA\LEVODOPA
     Dosage: AM = 2 ML, CD = 2.3 ML/H DURING 16H, ED = 1 ML
     Route: 050
     Dates: start: 20141210
  7. DIPIPERON [Concomitant]
     Active Substance: PIPAMPERONE
     Indication: PRODUCT USED FOR UNKNOWN INDICATION
     Route: 065
  8. DUODOPA [Suspect]
     Active Substance: CARBIDOPA\LEVODOPA
     Indication: PARKINSON^S DISEASE
     Dosage: AM = 3.5 ML, CD = 1.4 ML/H DURING 16H, ED = 1 ML
     Route: 050
     Dates: start: 20130603, end: 20130607
  9. DUODOPA [Suspect]
     Active Substance: CARBIDOPA\LEVODOPA
     Dosage: AM = 2 ML, CD = 2 ML/H DURING 16H, ED = 1 ML
     Route: 050
     Dates: start: 20141024, end: 20141123

REACTIONS (7)
  - Dyskinesia [Unknown]
  - Parkinson^s disease [Unknown]
  - On and off phenomenon [Unknown]
  - Confusional state [Not Recovered/Not Resolved]
  - Cognitive disorder [Not Recovered/Not Resolved]
  - Freezing phenomenon [Recovered/Resolved]
  - Agitation [Recovering/Resolving]
